FAERS Safety Report 5605686-1 (Version None)
Quarter: 2008Q1

REPORT INFORMATION
  Report Type: 
  Country: None (occurrence: None)
  Receive Date: 20080129
  Receipt Date: 20080118
  Transmission Date: 20080703
  Serious: Yes (Hospitalization)
  Sender: FDA-Public Use
  Company Number: IT-BAYER-200811481GPV

PATIENT
  Age: 87 Year
  Sex: Male

DRUGS (1)
  1. ULTRAVIST 370 [Suspect]
     Indication: COMPUTERISED TOMOGRAM
     Dosage: TOTAL DAILY DOSE: 120 ML
     Route: 041
     Dates: start: 20080108, end: 20080108

REACTIONS (3)
  - ERYTHEMA [None]
  - SWELLING FACE [None]
  - THROAT IRRITATION [None]
